FAERS Safety Report 24694471 (Version 5)
Quarter: 2025Q2

REPORT INFORMATION
  Report Type: Spontaneous
  Country: FR (occurrence: FR)
  Receive Date: 20241204
  Receipt Date: 20250519
  Transmission Date: 20250716
  Serious: Yes (Hospitalization, Other)
  Sender: JOHNSON AND JOHNSON
  Company Number: FR-JNJFOC-20241160467

PATIENT
  Sex: Male

DRUGS (7)
  1. RYBREVANT [Suspect]
     Active Substance: AMIVANTAMAB-VMJW
     Indication: Non-small cell lung cancer metastatic
     Dates: start: 20241118
  2. RYBREVANT [Suspect]
     Active Substance: AMIVANTAMAB-VMJW
     Dates: start: 20241127, end: 20241213
  3. RYBREVANT [Suspect]
     Active Substance: AMIVANTAMAB-VMJW
     Dates: end: 20241213
  4. RYBREVANT [Suspect]
     Active Substance: AMIVANTAMAB-VMJW
     Dates: end: 20241127
  5. RYBREVANT [Suspect]
     Active Substance: AMIVANTAMAB-VMJW
     Dates: end: 20241128
  6. CARBOPLATIN [Concomitant]
     Active Substance: CARBOPLATIN
     Indication: Product used for unknown indication
     Dates: start: 20241213
  7. PEMETREXED [Concomitant]
     Active Substance: PEMETREXED
     Indication: Product used for unknown indication

REACTIONS (3)
  - Anaphylactic reaction [Unknown]
  - Infusion related reaction [Unknown]
  - Non-small cell lung cancer metastatic [Unknown]

NARRATIVE: CASE EVENT DATE: 20241118
